FAERS Safety Report 24349147 (Version 2)
Quarter: 2024Q4

REPORT INFORMATION
  Report Type: Report from Study
  Country: US (occurrence: US)
  Receive Date: 20240923
  Receipt Date: 20241020
  Transmission Date: 20250114
  Serious: Yes (Hospitalization)
  Sender: ACADIA PHARMACEUTICALS
  Company Number: US-ACADIA PHARMACEUTICALS INC.-ACA-2024-TRF-005597

PATIENT
  Age: 11 Year
  Sex: Female

DRUGS (11)
  1. DAYBUE [Suspect]
     Active Substance: TROFINETIDE
     Indication: Rett syndrome
     Dosage: 40 MILLILITER, BID
     Route: 048
     Dates: start: 20240814
  2. DAYBUE [Suspect]
     Active Substance: TROFINETIDE
     Dosage: 20 MILLILITER, BID
     Route: 048
     Dates: start: 202409
  3. CEFAZOLIN [Concomitant]
     Active Substance: CEFAZOLIN
  4. GENTAMICIN [Concomitant]
     Active Substance: GENTAMICIN
  5. VANCOMYCIN [Concomitant]
     Active Substance: VANCOMYCIN
  6. TOBRAMYCIN [Concomitant]
     Active Substance: TOBRAMYCIN\TOBRAMYCIN SULFATE
  7. KEPPRA [Concomitant]
     Active Substance: LEVETIRACETAM
     Dosage: 100MG/ML- 5ML BID
  8. ACETAMINOPHEN [Concomitant]
     Active Substance: ACETAMINOPHEN
     Indication: Pain
     Dosage: 11.25ML
     Route: 048
  9. IBUPROFEN [Concomitant]
     Active Substance: IBUPROFEN
     Indication: Pain
     Dosage: 12.5ML
  10. LEVETIRACETAM [Concomitant]
     Active Substance: LEVETIRACETAM
     Dosage: 5 MILLILITER, BID
     Route: 048
  11. MULTIVITAMINES WITH IRON [ASCORBIC ACID;CYANOCOBALAMIN;ERGOCALCIFEROL; [Concomitant]
     Dosage: 7.5ML
     Route: 048

REACTIONS (2)
  - Spinal fusion surgery [Recovered/Resolved]
  - Underdose [Unknown]

NARRATIVE: CASE EVENT DATE: 20240814
